FAERS Safety Report 9168527 (Version 1)
Quarter: 2013Q1

REPORT INFORMATION
  Report Type: Report from Study
  Country: DE (occurrence: DE)
  Receive Date: 20130318
  Receipt Date: 20130318
  Transmission Date: 20140127
  Serious: Yes (Hospitalization)
  Sender: FDA-Public Use
  Company Number: DE-009507513-2011SP041381

PATIENT
  Age: 44 Year
  Sex: Male
  Weight: 79.2 kg

DRUGS (15)
  1. TEMODAL [Suspect]
     Indication: GLIOBLASTOMA MULTIFORME
     Dosage: 145 MG, QD
     Route: 048
     Dates: start: 20110726, end: 20110803
  2. TEMODAL [Suspect]
     Dosage: 145 MG, QD
     Route: 048
     Dates: start: 20110907
  3. TRAMADOL HYDROCHLORIDE [Concomitant]
     Dosage: 20 GTT, PRN
     Dates: start: 20110802
  4. NOVAMINSULFON [Concomitant]
     Dosage: 40 GTT, PRN
  5. MCP [Concomitant]
     Dosage: 20 GTT,(1 IN 1 DAY) PRN
     Dates: start: 20110802
  6. PANTOPRAZOLE [Concomitant]
     Dosage: 40 MG, QD
     Dates: start: 20110727
  7. ENOXAPARIN SODIUM [Concomitant]
     Dosage: 40 MG, (0.9 ML) UNK
     Dates: start: 20110802, end: 20110925
  8. IBUPROFEN [Concomitant]
     Dosage: 400 MG, QD
     Dates: start: 20110801
  9. ACETAMINOPHEN [Concomitant]
     Dosage: 500 MG, QD
     Dates: start: 20110913, end: 20110913
  10. PIPERACILLIN [Concomitant]
     Dosage: 13.5 MG, QD
     Dates: start: 20110927, end: 20111007
  11. CEFTRIAXONE SODIUM [Concomitant]
     Dosage: 2 G, QD
     Dates: start: 20110925, end: 20110926
  12. CLARITHROMYCIN [Concomitant]
     Dosage: 1 G, QD
     Dates: start: 20110927, end: 20110927
  13. BISOPROLOL [Concomitant]
     Dosage: 5 MG, QD
     Dates: start: 20110927
  14. ENALAPRIL MALEATE [Concomitant]
     Dosage: 40 MG, QD
     Dates: start: 20110721
  15. LEVETIRACETAM [Concomitant]
     Dosage: 1500 MG
     Dates: start: 20120501

REACTIONS (3)
  - Brain oedema [Recovered/Resolved with Sequelae]
  - Pneumonia [Unknown]
  - Headache [Not Recovered/Not Resolved]
